FAERS Safety Report 18220141 (Version 2)
Quarter: 2020Q3

REPORT INFORMATION
  Report Type: Report from Study
  Country: None (occurrence: RO)
  Receive Date: 20200902
  Receipt Date: 20200915
  Transmission Date: 20201103
  Serious: Yes (Death, Hospitalization)
  Sender: FDA-Public Use
  Company Number: RO-ABBVIE-20K-135-3531707-00

PATIENT
  Age: 75 Year
  Sex: Female

DRUGS (2)
  1. DUODOPA [Suspect]
     Active Substance: CARBIDOPA\LEVODOPA
     Dosage: DM=9.00 DC=3.30 ED=2.00 NRED=2; DMN=0.00 DCN=0.00 EDN=0.00?NREDN=0
     Route: 050
     Dates: end: 202009
  2. DUODOPA [Suspect]
     Active Substance: CARBIDOPA\LEVODOPA
     Indication: PARKINSON^S DISEASE
     Dosage: DM=9.00?DC=3.60?ED=1.80?NRED=2;?DMN=0.00?DCN=0.00?EDN=0.00?NREDN=0
     Route: 050
     Dates: start: 20141125

REACTIONS (3)
  - COVID-19 [Fatal]
  - Cardio-respiratory arrest [Fatal]
  - Mixed dementia [Not Recovered/Not Resolved]

NARRATIVE: CASE EVENT DATE: 20200817
